FAERS Safety Report 7206825-1 (Version None)
Quarter: 2010Q4

REPORT INFORMATION
  Report Type: 
  Country: None (occurrence: None)
  Receive Date: 20101217
  Receipt Date: 20101207
  Transmission Date: 20110411
  Serious: Yes (Other)
  Sender: FDA-Public Use
  Company Number: 000#5#2005-00602

PATIENT
  Sex: Male
  Weight: 66 kg

DRUGS (5)
  1. LACOSAMIDE [Suspect]
     Indication: EPILEPSY
     Dosage: (400 MG ORAL)
     Route: 048
     Dates: start: 20050701, end: 20050824
  2. LAMOTRIGINE [Concomitant]
  3. CLOBAZAM [Concomitant]
  4. MIRTAZAPINE [Concomitant]
  5. IBUPROFEN [Concomitant]

REACTIONS (5)
  - ABNORMAL BEHAVIOUR [None]
  - HALLUCINATION [None]
  - MEMORY IMPAIRMENT [None]
  - PSYCHOTIC DISORDER [None]
  - THINKING ABNORMAL [None]
